FAERS Safety Report 4301692-8 (Version None)
Quarter: 2004Q1

REPORT INFORMATION
  Report Type: 
  Country: None (occurrence: None)
  Receive Date: 20040219
  Receipt Date: 20040217
  Transmission Date: 20041129
  Serious: Yes (Hospitalization)
  Sender: FDA-Public Use
  Company Number: 04-01-0150

PATIENT
  Age: 37 Year
  Sex: Male
  Weight: 106.1417 kg

DRUGS (5)
  1. CLOZAPINE [Suspect]
     Indication: SCHIZOPHRENIA, PARANOID TYPE
     Dosage: 725 MG QD ORAL
     Route: 048
     Dates: start: 20000601
  2. KLONOPIN [Concomitant]
  3. ANAFRANIL [Concomitant]
  4. QUETIAPINE FUMARATE [Concomitant]
  5. CITALOPRAM [Concomitant]

REACTIONS (3)
  - BACTERIAL INFECTION [None]
  - ENDOCARDITIS [None]
  - POST PROCEDURAL COMPLICATION [None]
